FAERS Safety Report 5051259-1 (Version None)
Quarter: 2006Q3

REPORT INFORMATION
  Report Type: 
  Country: None (occurrence: None)
  Receive Date: 20060710
  Receipt Date: 20060626
  Transmission Date: 20061208
  Serious: Yes (Other)
  Sender: FDA-Public Use
  Company Number: HQWYE408827JUN06

PATIENT
  Age: 50 Year
  Sex: Female

DRUGS (3)
  1. PREMPRO [Suspect]
     Indication: NIGHT SWEATS
     Dosage: 0.45 MG/ 1.5 ONCE DAILY, ORAL
     Route: 048
     Dates: start: 20060501
  2. TRAMADOL HCL [Concomitant]
  3. CLONAPIN (CLONAZEPAM) [Concomitant]

REACTIONS (2)
  - CONVULSION [None]
  - LOSS OF CONSCIOUSNESS [None]
